FAERS Safety Report 5000250-X (Version None)
Quarter: 2006Q2

REPORT INFORMATION
  Report Type: 
  Country: None (occurrence: None)
  Receive Date: 20060511
  Receipt Date: 20051031
  Transmission Date: 20061013
  Serious: Yes (Hospitalization)
  Sender: FDA-Public Use
  Company Number: US-MERCK-0511USA00320

PATIENT
  Age: 52 Year
  Sex: Female
  Weight: 77 kg

DRUGS (8)
  1. VIOXX [Suspect]
     Indication: PAIN IN EXTREMITY
     Route: 048
     Dates: start: 20020227, end: 20020701
  2. ASPIRIN [Concomitant]
     Indication: PROPHYLAXIS
     Route: 065
     Dates: start: 20020130
  3. IBUPROFEN [Concomitant]
     Indication: PAIN
     Route: 065
     Dates: start: 20000105
  4. HYDROCODONE BITARTRATE [Concomitant]
     Route: 065
  5. BACTROBAN [Concomitant]
     Route: 065
  6. FLONASE [Concomitant]
     Route: 065
  7. CLARINEX [Concomitant]
     Route: 065
  8. SPECTAZOLE [Concomitant]
     Route: 065

REACTIONS (6)
  - BLOOD CHOLESTEROL INCREASED [None]
  - HYPERTENSION [None]
  - LIPIDS INCREASED [None]
  - MYOCARDIAL INFARCTION [None]
  - NECK PAIN [None]
  - SHOULDER PAIN [None]
